FAERS Safety Report 21905466 (Version 1)
Quarter: 2023Q1

REPORT INFORMATION
  Report Type: Spontaneous
  Country: US (occurrence: None)
  Receive Date: 20230124
  Receipt Date: 20230124
  Transmission Date: 20230417
  Serious: No
  Sender: FDA-Public Use
  Company Number: None

PATIENT
  Age: 27 Year
  Sex: Male
  Weight: 74.25 kg

DRUGS (3)
  1. GEMTESA [Suspect]
     Active Substance: VIBEGRON
  2. COPAXONE [Concomitant]
     Active Substance: GLATIRAMER ACETATE
  3. FLONASE [Concomitant]
     Active Substance: FLUTICASONE PROPIONATE

REACTIONS (4)
  - Headache [None]
  - Fatigue [None]
  - Muscular weakness [None]
  - Loss of bladder sensation [None]
